FAERS Safety Report 6521092-X (Version None)
Quarter: 2009Q4

REPORT INFORMATION
  Report Type: 
  Country: None (occurrence: None)
  Receive Date: 20091222
  Receipt Date: 20091214
  Transmission Date: 20100525
  Serious: Yes (Hospitalization)
  Sender: FDA-Public Use
  Company Number: AUR-APU-2009-01585

PATIENT
  Age: 56 Year
  Sex: Female

DRUGS (10)
  1. METOPROLOL TARTRATE [Suspect]
     Indication: HYPERTENSION
     Dosage: 25MG-50MG - DAILY
     Dates: start: 20090801
  2. LISINOPRIL [Suspect]
     Indication: HYPERTENSION
  3. ACTOS [Concomitant]
  4. ASPIRIN [Concomitant]
  5. MILK THISTLE [Concomitant]
  6. FLAX SEED OIL [Concomitant]
  7. RED YEAST RICE [Concomitant]
  8. MULTI-VITAMINS [Concomitant]
  9. GINKO [Concomitant]
  10. CHOLESTEROL DRUG [Concomitant]

REACTIONS (9)
  - BLOOD PRESSURE INCREASED [None]
  - DISSOCIATION [None]
  - DYSPNOEA [None]
  - FATIGUE [None]
  - HYPOAESTHESIA [None]
  - HYPOAESTHESIA EYE [None]
  - IRRITABILITY [None]
  - PARAESTHESIA [None]
  - SENSATION OF HEAVINESS [None]
